FAERS Safety Report 6107982-0 (Version None)
Quarter: 2009Q1

REPORT INFORMATION
  Report Type: 
  Country: None (occurrence: None)
  Receive Date: 20090305
  Receipt Date: 20090305
  Transmission Date: 20090719
  Serious: Yes (Other)
  Sender: FDA-Public Use
  Company Number: None

PATIENT
  Age: 24 Year
  Sex: Female
  Weight: 77.1115 kg

DRUGS (2)
  1. FLUOXETINE [Suspect]
     Indication: DEPRESSION
     Dosage: 10 MG 1X FOR 6 DAYS THEN PO
     Route: 048
     Dates: start: 20090119, end: 20090121
  2. FLUOXETINE [Suspect]
     Dosage: 20 MG ONCE A DAY PO
     Route: 048

REACTIONS (4)
  - ANXIETY [None]
  - CARDIAC DISORDER [None]
  - CHEST PAIN [None]
  - SINUS TACHYCARDIA [None]
